FAERS Safety Report 12736929 (Version 1)
Quarter: 2016Q3

REPORT INFORMATION
  Report Type: Spontaneous
  Country: MG (occurrence: MG)
  Receive Date: 20160912
  Receipt Date: 20160912
  Transmission Date: 20161109
  Serious: Yes (Other)
  Sender: FDA-Public Use
  Company Number: MG-BAYER-2016-174072

PATIENT
  Age: 12 Year
  Sex: Male

DRUGS (4)
  1. BETAMETHASONE. [Concomitant]
     Active Substance: BETAMETHASONE
     Dosage: UNK
     Dates: start: 2001
  2. CIPROFLOXACIN MONOHYDROCHLORIDE [Suspect]
     Active Substance: CIPROFLOXACIN
     Indication: SKIN LESION
     Dosage: DAILY DOSE 1 G
     Route: 048
     Dates: start: 2001
  3. PREDNISOLONE. [Suspect]
     Active Substance: PREDNISOLONE
     Indication: SKIN LESION
     Dosage: DAILY DOSE 10 MG
     Dates: start: 2001
  4. EOSINE [Concomitant]
     Dosage: UNK
     Route: 061
     Dates: start: 2001

REACTIONS (3)
  - Intentional product misuse [None]
  - Immunosuppression [None]
  - Pathogen resistance [None]
